FAERS Safety Report 21186111 (Version 2)
Quarter: 2022Q3

REPORT INFORMATION
  Report Type: Report from Study
  Country: FR (occurrence: FR)
  Receive Date: 20220808
  Receipt Date: 20220817
  Transmission Date: 20221027
  Serious: Yes (Hospitalization, Other)
  Sender: FDA-Public Use
  Company Number: FR-009507513-2207FRA005258

PATIENT
  Age: 6 Year
  Sex: Female
  Weight: 17 kg

DRUGS (7)
  1. TOPOTECAN HYDROCHLORIDE [Suspect]
     Active Substance: TOPOTECAN HYDROCHLORIDE
     Indication: Neoplasm recurrence
     Dosage: 0.75 MG/SQUARE METER, MAXIMUN 5 DAYS EVERY 21 DAYS
     Dates: start: 20220504
  2. VENETOCLAX [Suspect]
     Active Substance: VENETOCLAX
     Indication: Neoplasm recurrence
     Dosage: 250 MG, 1X/DAY
     Route: 048
     Dates: start: 20220502
  3. TEMOZOLOMIDE [Suspect]
     Active Substance: TEMOZOLOMIDE
     Indication: Neoplasm recurrence
     Dosage: DOSE PER WEIGHT: 100
     Dates: start: 20220504
  4. EMLA [Concomitant]
     Active Substance: LIDOCAINE\PRILOCAINE
     Indication: Pain prophylaxis
     Dosage: 1 DF, AS NEEDED
     Route: 061
     Dates: start: 2019
  5. MELATONIN [Concomitant]
     Active Substance: MELATONIN
     Indication: Sleep disorder
     Dosage: 2 MG, 1X/DAY
     Route: 048
     Dates: start: 202012
  6. ALPRAZOLAM [Concomitant]
     Active Substance: ALPRAZOLAM
     Indication: Sleep disorder
     Dosage: 25 MG, 1X/DAY
     Route: 048
     Dates: start: 20220504
  7. BACTRIM [Concomitant]
     Active Substance: SULFAMETHOXAZOLE\TRIMETHOPRIM
     Indication: Prophylaxis
     Dosage: 400 MG, 3 TIMES WEEKLY
     Route: 048
     Dates: start: 201912

REACTIONS (2)
  - Febrile neutropenia [Not Recovered/Not Resolved]
  - Metapneumovirus infection [Recovered/Resolved]

NARRATIVE: CASE EVENT DATE: 20220508
